FAERS Safety Report 4273057-9 (Version None)
Quarter: 2004Q1

REPORT INFORMATION
  Report Type: 
  Country: None (occurrence: None)
  Receive Date: 20040114
  Receipt Date: 20040106
  Transmission Date: 20041129
  Serious: Yes (Other)
  Sender: FDA-Public Use
  Company Number: THQ2004A00001

PATIENT
  Age: 57 Year
  Sex: Female

DRUGS (3)
  1. LANSOPRAZOLE [Suspect]
     Indication: BACTERIAL INFECTION
     Dosage: 30 MG
     Route: 048
     Dates: start: 20031128, end: 20031211
  2. KLACID (CLARITHROMYCIN) (UNKNOWN) [Suspect]
     Dosage: 1000 MG
     Route: 048
  3. AMOXIL [Concomitant]

REACTIONS (2)
  - DERMATITIS BULLOUS [None]
  - OEDEMA MOUTH [None]
